FAERS Safety Report 23277389 (Version 1)
Quarter: 2023Q4

REPORT INFORMATION
  Report Type: Report from Study
  Country: CN (occurrence: CN)
  Receive Date: 20231208
  Receipt Date: 20231208
  Transmission Date: 20240109
  Serious: Yes (Other)
  Sender: FDA-Public Use
  Company Number: CN-002147023-NVSC2023CN257366

PATIENT

DRUGS (1)
  1. LEQVIO [Suspect]
     Active Substance: INCLISIRAN SODIUM
     Indication: Hyperlipidaemia
     Dosage: 1.5 ML, OTHER
     Route: 058
     Dates: start: 20231030

REACTIONS (9)
  - Blood triglycerides [Unknown]
  - Alanine aminotransferase increased [Unknown]
  - Gamma-glutamyltransferase decreased [Unknown]
  - Fructosamine increased [Unknown]
  - Glycosylated haemoglobin increased [Unknown]
  - Blood uric acid increased [Unknown]
  - High density lipoprotein abnormal [Unknown]
  - Blood cholesterol increased [Unknown]
  - Aspartate aminotransferase increased [Unknown]
